FAERS Safety Report 5122540-2 (Version None)
Quarter: 2006Q4

REPORT INFORMATION
  Report Type: 
  Country: None (occurrence: None)
  Receive Date: 20061004
  Receipt Date: 20061004
  Transmission Date: 20070319
  Serious: Yes (Hospitalization)
  Sender: FDA-Public Use
  Company Number: None

PATIENT
  Age: 60 Year
  Sex: Male
  Weight: 73.5 kg

DRUGS (7)
  1. ZOCOR [Suspect]
     Dosage: 20MG, QHS, BY MOUTH
     Route: 048
     Dates: start: 20060721, end: 20060802
  2. METOPROLOL TARTRATE [Concomitant]
  3. DOCUSATE SODIUM (COLACE) [Concomitant]
  4. FUROSEMIDE [Concomitant]
  5. RANITIDINE HCL [Concomitant]
  6. COUMADIN [Concomitant]
  7. POTASSIUM CHLORIDE [Concomitant]

REACTIONS (1)
  - SYNCOPE [None]
